FAERS Safety Report 12432047 (Version 1)
Quarter: 2016Q2

REPORT INFORMATION
  Report Type: Spontaneous
  Country: US (occurrence: None)
  Receive Date: 20160602
  Receipt Date: 20160602
  Transmission Date: 20160815
  Serious: Yes (Disabling)
  Sender: FDA-Public Use
  Company Number: None

PATIENT
  Age: 52 Year
  Sex: Female
  Weight: 72.58 kg

DRUGS (1)
  1. LEVAQUIN [Suspect]
     Active Substance: LEVOFLOXACIN
     Indication: FOOD POISONING
     Dates: start: 20050505, end: 20050519

REACTIONS (10)
  - Depression [None]
  - Photosensitivity reaction [None]
  - Diarrhoea [None]
  - Suicidal ideation [None]
  - Arthralgia [None]
  - Hallucinations, mixed [None]
  - Fatigue [None]
  - Neuropathy peripheral [None]
  - Lethargy [None]
  - Diarrhoea haemorrhagic [None]

NARRATIVE: CASE EVENT DATE: 20050505
